FAERS Safety Report 25216897 (Version 1)
Quarter: 2025Q2

REPORT INFORMATION
  Report Type: Spontaneous
  Country: FR (occurrence: FR)
  Receive Date: 20250419
  Receipt Date: 20250419
  Transmission Date: 20250716
  Serious: Yes (Hospitalization)
  Sender: TEVA
  Company Number: None

PATIENT
  Age: 63 Year
  Sex: Female
  Weight: 125 kg

DRUGS (8)
  1. VENLAFAXINE [Interacting]
     Active Substance: VENLAFAXINE HYDROCHLORIDE
     Indication: Depression
     Route: 048
  2. IRBESARTAN [Interacting]
     Active Substance: IRBESARTAN
     Indication: Hypertension
     Route: 048
  3. METFORMIN HYDROCHLORIDE [Concomitant]
     Active Substance: METFORMIN HYDROCHLORIDE
     Indication: Type 2 diabetes mellitus
     Route: 048
  4. OXAZEPAM [Interacting]
     Active Substance: OXAZEPAM
     Indication: Anxiety
     Dosage: 1 TABLET OF 10 MG IN THE MORNING + 1 TABLET AT MIDDAY
     Route: 048
  5. MIRTAZAPINE [Suspect]
     Active Substance: MIRTAZAPINE
     Indication: Wrong patient
     Route: 048
     Dates: start: 20241223, end: 20241223
  6. LOXAPINE [Suspect]
     Active Substance: LOXAPINE
     Indication: Wrong patient
     Route: 048
     Dates: start: 20241223, end: 20241223
  7. LORAZEPAM [Suspect]
     Active Substance: LORAZEPAM
     Indication: Wrong patient
     Route: 048
     Dates: start: 20241223, end: 20241223
  8. CLOZAPINE [Suspect]
     Active Substance: CLOZAPINE
     Indication: Wrong patient
     Route: 048
     Dates: start: 20241223, end: 20241223

REACTIONS (4)
  - Coma [Recovered/Resolved]
  - Wrong patient [Recovered/Resolved]
  - Hypotension [Recovered/Resolved]
  - Sedation [Recovered/Resolved]

NARRATIVE: CASE EVENT DATE: 20241223
